FAERS Safety Report 23641339 (Version 1)
Quarter: 2024Q1

REPORT INFORMATION
  Report Type: Spontaneous
  Country: US (occurrence: US)
  Receive Date: 20240318
  Receipt Date: 20240318
  Transmission Date: 20240410
  Serious: Yes (Death, Other)
  Sender: FDA-Public Use
  Company Number: US-STRIDES ARCOLAB LIMITED-2024SP003002

PATIENT
  Age: 51 Year
  Sex: Female

DRUGS (5)
  1. CYCLOSPORINE [Suspect]
     Active Substance: CYCLOSPORINE
     Indication: Idiopathic pneumonia syndrome
     Dosage: UNK
     Route: 065
  2. SOLU-MEDROL [Suspect]
     Active Substance: METHYLPREDNISOLONE SODIUM SUCCINATE
     Indication: Idiopathic pneumonia syndrome
     Dosage: UNK (HIGH DOSE)
     Route: 065
  3. IMMUNE GLOBULIN NOS [Suspect]
     Active Substance: IMMUNE GLOBULIN NOS
     Indication: Idiopathic pneumonia syndrome
     Dosage: UNK
     Route: 042
  4. RITUXIMAB [Suspect]
     Active Substance: RITUXIMAB
     Indication: Idiopathic pneumonia syndrome
     Dosage: UNK
     Route: 065
  5. TOCILIZUMAB [Suspect]
     Active Substance: TOCILIZUMAB
     Indication: Idiopathic pneumonia syndrome
     Dosage: UNK
     Route: 065

REACTIONS (4)
  - Death [Fatal]
  - Treatment failure [Unknown]
  - Condition aggravated [Unknown]
  - Off label use [Unknown]
